FAERS Safety Report 24893884 (Version 2)
Quarter: 2025Q1

REPORT INFORMATION
  Report Type: Spontaneous
  Country: IR (occurrence: IR)
  Receive Date: 20250128
  Receipt Date: 20250203
  Transmission Date: 20250408
  Serious: Yes (Hospitalization, Disabling, Other)
  Sender: ACCORD
  Company Number: IR-Accord-466621

PATIENT
  Age: 8 Year
  Sex: Male

DRUGS (2)
  1. METHOTREXATE [Suspect]
     Active Substance: METHOTREXATE
     Indication: B precursor type acute leukaemia
     Dosage: COMPLETED TWELFTH SESSION
     Route: 037
  2. VINCRISTINE [Concomitant]
     Active Substance: VINCRISTINE
     Indication: B precursor type acute leukaemia

REACTIONS (2)
  - Neurotoxicity [Recovering/Resolving]
  - Cauda equina syndrome [Recovering/Resolving]
